FAERS Safety Report 18511079 (Version 1)
Quarter: 2020Q4

REPORT INFORMATION
  Report Type: Spontaneous
  Country: FR (occurrence: FR)
  Receive Date: 20201117
  Receipt Date: 20201117
  Transmission Date: 20210114
  Serious: Yes (Hospitalization)
  Sender: FDA-Public Use
  Company Number: FR-MYLANLABS-2020M1094008

PATIENT
  Age: 72 Year
  Sex: Male
  Weight: 51 kg

DRUGS (9)
  1. DOLIPRANE [Concomitant]
     Active Substance: ACETAMINOPHEN
     Dosage: 1000 MILLIGRAM
     Route: 048
  2. CLINDAMYCIN. [Suspect]
     Active Substance: CLINDAMYCIN
     Indication: PERICARDITIS
     Dosage: 600 MILLIGRAM, QD
     Route: 048
     Dates: start: 20201003, end: 20201015
  3. DORAVIRINE [Suspect]
     Active Substance: DORAVIRINE
     Indication: HIV TEST POSITIVE
     Dosage: 100 MILLIGRAM, QD
     Route: 048
     Dates: start: 202009, end: 20201013
  4. ALDACTONE [Concomitant]
     Active Substance: SPIRONOLACTONE
     Route: 048
  5. PROPRANOLOL [Concomitant]
     Active Substance: PROPRANOLOL HYDROCHLORIDE
     Dosage: 40 MILLIGRAM, QD
     Route: 048
  6. LEVOFLOXACIN. [Suspect]
     Active Substance: LEVOFLOXACIN
     Indication: PERICARDITIS
     Dosage: 500 MILLIGRAM, QD
     Route: 048
     Dates: start: 20200929, end: 20201015
  7. AMIODARONE                         /00133102/ [Concomitant]
     Active Substance: AMIODARONE
     Dosage: 200 MILLIGRAM, QD
     Route: 048
  8. AMLODIPINE [Concomitant]
     Active Substance: AMLODIPINE BESYLATE
     Dosage: 5 MILLIGRAM, QD
     Route: 048
  9. TIVICAY [Suspect]
     Active Substance: DOLUTEGRAVIR SODIUM
     Indication: HIV TEST POSITIVE
     Dosage: 50 MILLIGRAM, QD
     Route: 048
     Dates: start: 202009, end: 20201013

REACTIONS (1)
  - Hallucination [Unknown]

NARRATIVE: CASE EVENT DATE: 20201011
